FAERS Safety Report 5069171-0 (Version None)
Quarter: 2006Q3

REPORT INFORMATION
  Report Type: 
  Country: None (occurrence: None)
  Receive Date: 20060717
  Receipt Date: 20060323
  Transmission Date: 20061208
  Serious: No
  Sender: FDA-Public Use
  Company Number: 2006000700

PATIENT
  Age: 70 Year
  Sex: Male

DRUGS (1)
  1. TARCEVA [Suspect]
     Indication: LUNG NEOPLASM MALIGNANT
     Dosage: 150 MG (QD), ORAL
     Route: 048
     Dates: start: 20060303

REACTIONS (5)
  - BREATH ODOUR [None]
  - COUGH [None]
  - DIARRHOEA [None]
  - RASH PRURITIC [None]
  - SKIN ODOUR ABNORMAL [None]
